FAERS Safety Report 9775727 (Version 2)
Quarter: 2013Q4

REPORT INFORMATION
  Report Type: Spontaneous
  Country: JP (occurrence: JP)
  Receive Date: 20131220
  Receipt Date: 20131220
  Transmission Date: 20140711
  Serious: Yes (Hospitalization, Other)
  Sender: FDA-Public Use
  Company Number: JP-OTSUKA-02100-JPN-03-0104

PATIENT
  Age: 60 Year
  Sex: Male

DRUGS (15)
  1. PLETAAL [Suspect]
     Indication: PERIPHERAL ARTERIAL OCCLUSIVE DISEASE
     Dosage: 100 MG, BID
     Route: 048
     Dates: start: 20011020, end: 20030604
  2. BAYASPIRIN [Suspect]
     Indication: PERIPHERAL ARTERIAL OCCLUSIVE DISEASE
     Dosage: 100 MG, QD
     Route: 048
     Dates: start: 20021204, end: 20030604
  3. TOLEDOMIN [Concomitant]
     Indication: DEPRESSION
     Dosage: 15 MG, BID
     Route: 048
     Dates: start: 20020227, end: 20030604
  4. BETAMAC [Concomitant]
     Indication: DEPRESSION
     Dosage: 50 MG, BID
     Route: 048
     Dates: start: 20020227, end: 20030604
  5. ADALAT CR [Concomitant]
     Indication: HYPERTENSION
     Dosage: 20 MG, QD
     Route: 048
     Dates: start: 20010904, end: 20020226
  6. ADALAT CR [Concomitant]
     Dosage: 20 MG, BID
     Route: 048
     Dates: start: 20020227, end: 20020827
  7. ADALAT CR [Concomitant]
     Dosage: 20 MG, QD
     Route: 048
     Dates: start: 20020828, end: 20021203
  8. RENDEM [Concomitant]
     Indication: INSOMNIA
     Dosage: 0.25 MG, QD
     Route: 048
     Dates: start: 20010222, end: 20030604
  9. ROHYPNOL [Concomitant]
     Indication: INSOMNIA
     Dosage: 2 MG, QD
     Route: 048
     Dates: start: 20011006, end: 20030604
  10. RIZE [Concomitant]
     Indication: DEPRESSION
     Dosage: 5 MG, BID
     Route: 048
     Dates: start: 20020227, end: 20030604
  11. SEFTAC [Concomitant]
     Indication: GASTRITIS
     Dosage: 0.5 G, BID
     Route: 048
     Dates: start: 20020911, end: 20030604
  12. MAGNESIUM OXIDE [Concomitant]
     Indication: CONSTIPATION
     Dosage: 0.6 G, BID
     Route: 048
     Dates: start: 20020911, end: 20030604
  13. FAMOTIDINE [Concomitant]
     Indication: GASTRITIS
     Dosage: 10 MG, BID
     Route: 048
     Dates: start: 20030326, end: 20030604
  14. NORVASC [Concomitant]
     Indication: HYPERTENSION
     Dosage: 5 MG, QD
     Route: 048
     Dates: start: 20010222, end: 20010903
  15. NICARPINE [Concomitant]
     Indication: HYPERTENSION
     Route: 048
     Dates: start: 20021204, end: 20030128

REACTIONS (2)
  - Cerebral haemorrhage [Recovered/Resolved with Sequelae]
  - Neck pain [Unknown]
